FAERS Safety Report 6476552-7 (Version None)
Quarter: 2009Q4

REPORT INFORMATION
  Report Type: 
  Country: None (occurrence: None)
  Receive Date: 20091207
  Receipt Date: 20091201
  Transmission Date: 20100525
  Serious: Yes (Death, Hospitalization)
  Sender: FDA-Public Use
  Company Number: DK-CELGENEUS-044-20785-09120136

PATIENT
  Sex: Female

DRUGS (4)
  1. THALIDOMIDE [Suspect]
     Route: 048
  2. FLUCONAZOLE [Suspect]
     Indication: FUNGAL INFECTION
     Route: 048
     Dates: start: 20091014
  3. OMEPRAZOLE [Concomitant]
     Route: 048
  4. ALLOPURINOL [Concomitant]
     Indication: GOUT
     Route: 048

REACTIONS (3)
  - GENERAL PHYSICAL HEALTH DETERIORATION [None]
  - MULTIPLE MYELOMA [None]
  - TOXIC EPIDERMAL NECROLYSIS [None]
